FAERS Safety Report 9490796 (Version 1)
Quarter: 2013Q3

REPORT INFORMATION
  Report Type: Spontaneous
  Country: US (occurrence: None)
  Receive Date: 20130828
  Receipt Date: 20130828
  Transmission Date: 20140515
  Serious: Yes (Other)
  Sender: FDA-Public Use
  Company Number: None

PATIENT
  Age: 3 Year
  Sex: Female

DRUGS (1)
  1. TOPAMAX [Suspect]
     Indication: EPILEPSY
     Dosage: TID  PGT
     Dates: start: 2012

REACTIONS (4)
  - Convulsion [None]
  - Condition aggravated [None]
  - Therapeutic response unexpected with drug substitution [None]
  - Product substitution issue [None]
